FAERS Safety Report 7972891-9 (Version None)
Quarter: 2011Q4

REPORT INFORMATION
  Report Type: 
  Country: None (occurrence: None)
  Receive Date: 20111213
  Receipt Date: 20110419
  Transmission Date: 20120403
  Serious: No
  Sender: FDA-Public Use
  Company Number: US-MYLANLABS-2011S1008056

PATIENT
  Age: 43 Year
  Sex: Female

DRUGS (2)
  1. DOXYCYCLINE [Suspect]
     Indication: ROSACEA
     Route: 048
     Dates: start: 20110401, end: 20110414
  2. METROGEL [Suspect]
     Indication: ROSACEA
     Route: 061
     Dates: start: 20110401, end: 20110402

REACTIONS (4)
  - SKIN IRRITATION [None]
  - DERMATITIS [None]
  - ROSACEA [None]
  - SKIN BURNING SENSATION [None]
